FAERS Safety Report 12913565 (Version 2)
Quarter: 2016Q4

REPORT INFORMATION
  Report Type: Not Available
  Country: None (occurrence: US)
  Receive Date: 20161104
  Receipt Date: 20161114
  Transmission Date: 20170207
  Serious: No
  Sender: FDA-Public Use
  Company Number: US-AKORN-41619

PATIENT
  Age: 74 Year
  Sex: Male

DRUGS (1)
  1. OFLOXACIN 0.3% OPHTHALMIC SOLUTION [Suspect]
     Active Substance: OFLOXACIN

REACTIONS (1)
  - Drug ineffective for unapproved indication [Not Recovered/Not Resolved]
